FAERS Safety Report 6300263-1 (Version None)
Quarter: 2009Q3

REPORT INFORMATION
  Report Type: 
  Country: None (occurrence: None)
  Receive Date: 20090803
  Receipt Date: 20090620
  Transmission Date: 20100115
  Serious: Yes (Life-Threatening, Hospitalization)
  Sender: FDA-Public Use
  Company Number: 2009EU002863

PATIENT
  Age: 50 Year
  Sex: Female

DRUGS (47)
  1. TACROLIMUS [Suspect]
     Indication: RENAL TRANSPLANT
     Dosage: 4 MG, UID/QD, ORAL
     Route: 048
     Dates: start: 20040423
  2. MYCOPHENOLATE MOFETIL [Suspect]
     Indication: RENAL TRANSPLANT
     Dosage: SEE IMAGE
     Route: 048
     Dates: start: 20040110, end: 20040218
  3. MYCOPHENOLATE MOFETIL [Suspect]
     Indication: RENAL TRANSPLANT
     Dosage: SEE IMAGE
     Route: 048
     Dates: start: 20040224, end: 20040314
  4. MYCOPHENOLATE MOFETIL [Suspect]
     Indication: RENAL TRANSPLANT
     Dosage: SEE IMAGE
     Route: 048
     Dates: start: 20040315, end: 20040322
  5. MYCOPHENOLATE MOFETIL [Suspect]
     Indication: RENAL TRANSPLANT
     Dosage: SEE IMAGE
     Route: 048
     Dates: start: 20040411, end: 20040419
  6. MYCOPHENOLATE MOFETIL [Suspect]
     Indication: RENAL TRANSPLANT
     Dosage: SEE IMAGE
     Route: 048
     Dates: start: 20040420, end: 20040422
  7. MYCOPHENOLATE MOFETIL [Suspect]
     Indication: RENAL TRANSPLANT
     Dosage: SEE IMAGE
     Route: 048
     Dates: start: 20040423, end: 20040530
  8. MYCOPHENOLATE MOFETIL [Suspect]
     Indication: RENAL TRANSPLANT
     Dosage: SEE IMAGE
     Route: 048
     Dates: start: 20040423, end: 20040530
  9. MYCOPHENOLATE MOFETIL [Suspect]
     Indication: RENAL TRANSPLANT
     Dosage: SEE IMAGE
     Route: 048
     Dates: start: 20040531
  10. MYCOPHENOLATE MOFETIL [Suspect]
     Indication: RENAL TRANSPLANT
     Dosage: SEE IMAGE
     Route: 048
     Dates: start: 20040531
  11. CYCLOSPORINE [Suspect]
     Indication: RENAL TRANSPLANT
     Dosage: SEE IMAGE
     Route: 048
     Dates: start: 20040110, end: 20040115
  12. CYCLOSPORINE [Suspect]
     Indication: RENAL TRANSPLANT
     Dosage: SEE IMAGE
     Route: 048
     Dates: start: 20040116, end: 20040122
  13. CYCLOSPORINE [Suspect]
     Indication: RENAL TRANSPLANT
     Dosage: SEE IMAGE
     Route: 048
     Dates: start: 20040203, end: 20040218
  14. CYCLOSPORINE [Suspect]
     Indication: RENAL TRANSPLANT
     Dosage: SEE IMAGE
     Route: 048
     Dates: start: 20040123, end: 20040423
  15. CYCLOSPORINE [Suspect]
     Indication: RENAL TRANSPLANT
     Dosage: SEE IMAGE
     Route: 048
     Dates: start: 20040224
  16. METHYLPREDNISOLONE(METHYLPREDNISOLONE SODIUM SUCCINATE) [Suspect]
     Indication: RENAL TRANSPLANT
     Dosage: SEE IMAGE
     Route: 042
     Dates: start: 20040110, end: 20040110
  17. METHYLPREDNISOLONE(METHYLPREDNISOLONE SODIUM SUCCINATE) [Suspect]
     Indication: RENAL TRANSPLANT
     Dosage: SEE IMAGE
     Route: 042
     Dates: start: 20040119, end: 20040130
  18. METHYLPREDNISOLONE(METHYLPREDNISOLONE SODIUM SUCCINATE) [Suspect]
     Indication: RENAL TRANSPLANT
     Dosage: SEE IMAGE
     Route: 042
     Dates: start: 20040218, end: 20040218
  19. METHYLPREDNISOLONE(METHYLPREDNISOLONE SODIUM SUCCINATE) [Suspect]
     Indication: RENAL TRANSPLANT
     Dosage: SEE IMAGE
     Route: 042
     Dates: start: 20040422, end: 20040422
  20. METHYLPREDNISOLONE(METHYLPREDNISOLONE SODIUM SUCCINATE) [Suspect]
     Indication: RENAL TRANSPLANT
     Dosage: SEE IMAGE
     Route: 042
     Dates: start: 20040504, end: 20040506
  21. HEPARIN [Suspect]
     Indication: DRUG USE FOR UNKNOWN INDICATION
     Dosage: 2500 IU, TID, OTHER
     Route: 050
     Dates: start: 20040110, end: 20040515
  22. HYDROCORTISONE [Suspect]
     Indication: RENAL TRANSPLANT
     Dosage: 50 MG, TID, IV NOS
     Route: 042
     Dates: start: 20040423, end: 20040426
  23. SOLU-MEDROL [Suspect]
     Indication: RENAL TRANSPLANT
     Dosage: 500 MG, QID, IV NOS
     Route: 042
     Dates: start: 20040110, end: 20040506
  24. PREDNISONE TAB [Suspect]
     Indication: RENAL TRANSPLANT
     Dosage: 20 MG, UID/QD, ORAL ; 20 MG, UID/QD, ORAL ; 20 MG, UID/QD, ORAL
     Route: 048
     Dates: start: 20040112, end: 20040114
  25. PREDNISONE TAB [Suspect]
     Indication: RENAL TRANSPLANT
     Dosage: 20 MG, UID/QD, ORAL ; 20 MG, UID/QD, ORAL ; 20 MG, UID/QD, ORAL
     Route: 048
     Dates: start: 20040118, end: 20040119
  26. PREDNISONE TAB [Suspect]
     Indication: RENAL TRANSPLANT
     Dosage: 20 MG, UID/QD, ORAL ; 20 MG, UID/QD, ORAL ; 20 MG, UID/QD, ORAL
     Route: 048
     Dates: start: 20040123, end: 20040218
  27. SULFAMETHOXAZOLE AND TRIMETHOPRIM [Concomitant]
  28. ERYTHROPOETIN (EPOETIN ALFA) [Concomitant]
  29. AMLDOIPINE (AMLODIPINE BESILATE) [Concomitant]
  30. VALGANCICLOVIR HCL [Concomitant]
  31. AMIODARONE HCL [Concomitant]
  32. INSULIN (INSULIN) [Concomitant]
  33. GLIBENCLAMIDE [Concomitant]
  34. CEFEPIME (CEFEPIME HYDROCHLORIDE) [Concomitant]
  35. IMIPENEM AND CILASTATIN SODIUM [Concomitant]
  36. AMPICILLIN (AMPICILLIN POTASSIUM) [Concomitant]
  37. CEFTRIAXON (CEFPIROME SULFATE) [Concomitant]
  38. CIPROFLOXACIN (CIPROFLOXACIN LACTATE) [Concomitant]
  39. FUROSEMIDE (FUROSEMIDE SODIUM) [Concomitant]
  40. GANCICLOVIR (GANCICLOVIR SODIUM) [Concomitant]
  41. LEVOFLOXACIN [Concomitant]
  42. METRONIDAZOLE (METRONIDAZOLE SODIUM) [Concomitant]
  43. NIFEDIPINE [Concomitant]
  44. PROPRANOLOL [Concomitant]
  45. SIMVASTATIN [Concomitant]
  46. VANCOMYCIN [Concomitant]
  47. VERAPAMIL [Concomitant]

REACTIONS (12)
  - ACINETOBACTER INFECTION [None]
  - BRONCHITIS [None]
  - HYPERGLYCAEMIA [None]
  - KLEBSIELLA INFECTION [None]
  - LOSS OF CONSCIOUSNESS [None]
  - PELVIC ABSCESS [None]
  - PERITONITIS [None]
  - POST PROCEDURAL COMPLICATION [None]
  - PSEUDOMEMBRANOUS COLITIS [None]
  - PSEUDOMONAS INFECTION [None]
  - SEPSIS [None]
  - SHOCK HAEMORRHAGIC [None]
